FAERS Safety Report 24323523 (Version 3)
Quarter: 2025Q1

REPORT INFORMATION
  Report Type: Report from Study
  Country: US (occurrence: US)
  Receive Date: 20240916
  Receipt Date: 20250127
  Transmission Date: 20250408
  Serious: Yes (Other)
  Sender: MYLAN
  Company Number: US-MYLANLABS-2024M1084011

PATIENT
  Sex: Female
  Weight: 70.31 kg

DRUGS (4)
  1. PREGABALIN [Suspect]
     Active Substance: PREGABALIN
     Indication: Product used for unknown indication
     Route: 065
     Dates: end: 202410
  2. BENADRYL [Concomitant]
     Active Substance: DIPHENHYDRAMINE HYDROCHLORIDE
     Indication: Hypersensitivity
     Route: 065
  3. GABAPENTIN [Concomitant]
     Active Substance: GABAPENTIN
     Indication: Fibromyalgia
     Dosage: 100 MILLIGRAM, BID (1 IN MORNING AND 1 AT NIGHT)
     Route: 065
  4. GABAPENTIN [Concomitant]
     Active Substance: GABAPENTIN
     Indication: Neuropathy peripheral

REACTIONS (12)
  - Suicidal ideation [Unknown]
  - Delirium [Unknown]
  - Brain fog [Unknown]
  - Oropharyngeal pain [Unknown]
  - Withdrawal syndrome [Unknown]
  - Nightmare [Unknown]
  - Pain [Unknown]
  - Confusional state [Unknown]
  - Disturbance in attention [Unknown]
  - Weight increased [Unknown]
  - Feeling abnormal [Unknown]
  - Product substitution issue [Unknown]
